FAERS Safety Report 5880773-1 (Version None)
Quarter: 2008Q3

REPORT INFORMATION
  Report Type: 
  Country: None (occurrence: None)
  Receive Date: 20080912
  Receipt Date: 20080604
  Transmission Date: 20090109
  Serious: No
  Sender: FDA-Public Use
  Company Number: US-ABBOTT-08P-163-0456162-00

PATIENT
  Sex: Male
  Weight: 83.082 kg

DRUGS (12)
  1. HUMIRA [Suspect]
     Indication: RHEUMATOID ARTHRITIS
     Route: 058
     Dates: start: 20080509
  2. PREDNISONE TAB [Concomitant]
     Indication: RHEUMATOID ARTHRITIS
     Route: 048
     Dates: start: 19930101
  3. ASUFLAXANE [Concomitant]
     Indication: RHEUMATOID ARTHRITIS
     Route: 048
     Dates: start: 19930101
  4. FOLIC ACID [Concomitant]
     Indication: RHEUMATOID ARTHRITIS
     Route: 048
     Dates: start: 19930101
  5. DULOXETINE HYDROCHLORIDE [Concomitant]
     Indication: DEPRESSION
     Route: 048
     Dates: start: 20080501
  6. LEFLUNOMIDE [Concomitant]
     Indication: RHEUMATOID ARTHRITIS
     Route: 048
     Dates: start: 20050101
  7. METOCLOPRAMIDE [Concomitant]
     Indication: HIATUS HERNIA
     Route: 048
     Dates: start: 20030101
  8. PANTOPRAZOLE [Concomitant]
     Indication: GASTROOESOPHAGEAL REFLUX DISEASE
     Route: 048
     Dates: start: 20030101
  9. VICOPROFEN [Concomitant]
     Indication: PAIN
     Dosage: UNIT: 5/500 MILLIGRAMS ONCE OR TWICE A DAY 2-3 TABLETS
     Route: 048
     Dates: start: 20050101
  10. VITAMIN E [Concomitant]
     Indication: VITAMIN SUPPLEMENTATION
     Dosage: UP TO 1000 MILLIGRAMS
     Route: 048
     Dates: start: 20000101
  11. GABAPENTANE [Concomitant]
     Indication: NEUROMUSCULAR BLOCKADE
     Route: 048
     Dates: start: 20060101
  12. MORPHINE [Concomitant]
     Indication: PAIN
     Route: 048
     Dates: start: 20060101

REACTIONS (3)
  - ACCIDENTAL EXPOSURE [None]
  - INJECTION SITE PAIN [None]
  - INJECTION SITE URTICARIA [None]
